FAERS Safety Report 10687485 (Version 3)
Quarter: 2015Q3

REPORT INFORMATION
  Report Type: Spontaneous
  Country: US (occurrence: US)
  Receive Date: 20150102
  Receipt Date: 20150810
  Transmission Date: 20151125
  Serious: Yes (Hospitalization)
  Sender: FDA-Public Use
  Company Number: US-BAYER-2014-191180

PATIENT
  Age: 48 Year
  Sex: Female
  Weight: 129.25 kg

DRUGS (3)
  1. MIRENA [Suspect]
     Active Substance: LEVONORGESTREL
     Indication: MENORRHAGIA
     Dosage: 20 MCG/24HR, CONT
     Route: 015
     Dates: start: 200711, end: 201010
  2. TRIAMTERENE. [Concomitant]
     Active Substance: TRIAMTERENE
     Indication: HYPERTENSION
     Dosage: UNK
     Dates: start: 201005
  3. ALBUTEROL. [Concomitant]
     Active Substance: ALBUTEROL
     Indication: ASTHMA
     Dosage: UNK
     Dates: start: 2002

REACTIONS (8)
  - Injury [Recovered/Resolved]
  - Pain [Recovered/Resolved]
  - Product use issue [None]
  - Device dislocation [Recovered/Resolved]
  - Gait disturbance [None]
  - Abdominal pain [Recovered/Resolved]
  - Dysstasia [None]
  - Dyspareunia [None]

NARRATIVE: CASE EVENT DATE: 2010
